FAERS Safety Report 5274261-3 (Version None)
Quarter: 2007Q1

REPORT INFORMATION
  Report Type: 
  Country: None (occurrence: None)
  Receive Date: 20070323
  Receipt Date: 20070314
  Transmission Date: 20070707
  Serious: Yes (Other)
  Sender: FDA-Public Use
  Company Number: US-JNJFOC-20070304009

PATIENT
  Sex: Male
  Weight: 67.59 kg

DRUGS (5)
  1. LEVAQUIN [Suspect]
     Route: 065
  2. LEVAQUIN [Suspect]
     Route: 065
  3. LEVAQUIN [Suspect]
     Route: 065
  4. LEVAQUIN [Suspect]
     Indication: PROSTATE INFECTION
     Route: 065
  5. IRON SUPPLEMENTS [Concomitant]
     Route: 065

REACTIONS (1)
  - LYMPHOCYTE COUNT DECREASED [None]
